FAERS Safety Report 4383503-8 (Version None)
Quarter: 2004Q2

REPORT INFORMATION
  Report Type: 
  Country: None (occurrence: None)
  Receive Date: 20040618
  Receipt Date: 20040615
  Transmission Date: 20050107
  Serious: Yes (Hospitalization)
  Sender: FDA-Public Use
  Company Number: J081-002-001608

PATIENT
  Age: 78 Year
  Sex: Male
  Weight: 39 kg

DRUGS (1)
  1. ARICEPT [Suspect]
     Indication: DEMENTIA ALZHEIMER'S TYPE
     Dosage: SEE IMAGE;  DAY 23 AND DAY 54 AFTER HOSPITALIZATION
     Route: 048

REACTIONS (9)
  - AGGRESSION [None]
  - DELIRIUM [None]
  - DEMENTIA ALZHEIMER'S TYPE [None]
  - DISEASE PROGRESSION [None]
  - EXTRAPYRAMIDAL DISORDER [None]
  - PARKINSONISM [None]
  - PNEUMONIA ASPIRATION [None]
  - PORIOMANIA [None]
  - SEDATION [None]
